FAERS Safety Report 21860585 (Version 2)
Quarter: 2023Q1

REPORT INFORMATION
  Report Type: Spontaneous
  Country: AR (occurrence: AR)
  Receive Date: 20230113
  Receipt Date: 20230308
  Transmission Date: 20230417
  Serious: Yes (Other)
  Sender: FDA-Public Use
  Company Number: AR-PFIZER INC-PV202300005276

PATIENT
  Age: 15 Year
  Sex: Male

DRUGS (1)
  1. GENOTROPIN [Suspect]
     Active Substance: SOMATROPIN
     Indication: Growth hormone deficiency
     Dosage: MORE THAN 2 MG 6 TIMES PER WEEK
     Dates: start: 20160427

REACTIONS (3)
  - Scoliosis [Unknown]
  - Poor quality device used [Unknown]
  - Device information output issue [Unknown]

NARRATIVE: CASE EVENT DATE: 20230107
